FAERS Safety Report 10058531 (Version 3)
Quarter: 2014Q4

REPORT INFORMATION
  Report Type: Spontaneous
  Country: JP (occurrence: JP)
  Receive Date: 20140404
  Receipt Date: 20141120
  Transmission Date: 20150528
  Serious: Yes (Life-Threatening)
  Sender: FDA-Public Use
  Company Number: JP-009507513-1404JPN002962

PATIENT
  Age: 17 Year
  Sex: Male
  Weight: 53 kg

DRUGS (3)
  1. CANCIDAS [Suspect]
     Active Substance: CASPOFUNGIN ACETATE
     Indication: SYSTEMIC CANDIDA
     Dosage: 50 MG, QD
     Route: 041
     Dates: start: 20130918, end: 20131021
  2. CANCIDAS [Suspect]
     Active Substance: CASPOFUNGIN ACETATE
     Indication: SYSTEMIC CANDIDA
     Dosage: 70 MG, QD
     Route: 041
     Dates: start: 20130917, end: 20130917
  3. MEROPEN [Concomitant]
     Active Substance: MEROPENEM
     Indication: PERITONITIS
     Dosage: 0.5 G, TID
     Route: 042
     Dates: start: 20130913, end: 20130917

REACTIONS (2)
  - Drug ineffective [Unknown]
  - Peritonitis [Recovering/Resolving]

NARRATIVE: CASE EVENT DATE: 20130917
